FAERS Safety Report 7505606-9 (Version None)
Quarter: 2011Q2

REPORT INFORMATION
  Report Type: 
  Country: None (occurrence: None)
  Receive Date: 20110526
  Receipt Date: 20110520
  Transmission Date: 20111010
  Serious: Yes (Life-Threatening, Hospitalization)
  Sender: FDA-Public Use
  Company Number: GB-PFIZER INC-2011043935

PATIENT
  Age: 52 Year
  Sex: Female
  Weight: 64.7 kg

DRUGS (7)
  1. PREMPAK-C [Concomitant]
     Indication: HYPOGONADISM
  2. HYDROCORTISONE [Concomitant]
     Indication: BLOOD CORTICOTROPHIN DECREASED
     Dosage: 15 MG, 1X/DAY
     Route: 048
     Dates: start: 20031208, end: 20090930
  3. PRAVASTATIN [Concomitant]
     Indication: HYPERCHOLESTEROLAEMIA
     Dosage: 20 MG, 1X/DAY
     Route: 048
     Dates: start: 20010518, end: 20090101
  4. LEVOTHYROXINE SODIUM [Concomitant]
     Indication: HYPOTHYROIDISM
     Dosage: 100 UG, 1X/DAY
     Route: 048
     Dates: start: 19970702
  5. PREMPAK-C [Concomitant]
     Indication: BLOOD FOLLICLE STIMULATING HORMONE DECREASED
     Dosage: 1.25 MG, 1X/DAY
     Route: 048
     Dates: start: 20050713, end: 20090930
  6. PREMPAK-C [Concomitant]
     Indication: BLOOD LUTEINISING HORMONE DECREASED
  7. SOMATROPIN RDNA [Suspect]
     Indication: HYPOPITUITARISM
     Dosage: 0.8 MG, 7 INJECTIONS/WEEK
     Dates: start: 19980519, end: 20090930

REACTIONS (1)
  - PITUITARY TUMOUR BENIGN [None]
